FAERS Safety Report 4392785-8 (Version None)
Quarter: 2004Q3

REPORT INFORMATION
  Report Type: 
  Country: None (occurrence: None)
  Receive Date: 20040702
  Receipt Date: 20040621
  Transmission Date: 20050211
  Serious: Yes (Hospitalization)
  Sender: FDA-Public Use
  Company Number: GB-2004-027294

PATIENT
  Age: 25 Year
  Sex: Female
  Weight: 91 kg

DRUGS (1)
  1. MIRENA [Suspect]
     Indication: ENDOMETRIOSIS
     Dosage: UNK, UNK, INTRA-UTERINE
     Route: 015
     Dates: start: 20021104, end: 20040421

REACTIONS (2)
  - ABDOMINAL PAIN [None]
  - CONSTIPATION [None]
